FAERS Safety Report 5630594-X (Version None)
Quarter: 2008Q1

REPORT INFORMATION
  Report Type: 
  Country: None (occurrence: None)
  Receive Date: 20080219
  Receipt Date: 20080218
  Transmission Date: 20080703
  Serious: Yes (Life-Threatening)
  Sender: FDA-Public Use
  Company Number: B0508570A

PATIENT
  Age: 79 Year
  Sex: Female
  Weight: 100 kg

DRUGS (4)
  1. ACYCLOVIR [Suspect]
     Dosage: 2850MG PER DAY
     Route: 042
     Dates: start: 20080114
  2. ASPIRIN [Concomitant]
     Route: 054
     Dates: start: 20080109, end: 20080110
  3. LANSOPRAZOLE [Concomitant]
     Dosage: 20MG PER DAY
     Route: 048
  4. PHENYTOIN [Concomitant]
     Dosage: 300MG PER DAY
     Dates: start: 20080116

REACTIONS (2)
  - BLOOD POTASSIUM INCREASED [None]
  - RENAL FAILURE ACUTE [None]
